FAERS Safety Report 24006169 (Version 2)
Quarter: 2024Q4

REPORT INFORMATION
  Report Type: Report from Study
  Country: US (occurrence: US)
  Receive Date: 20240624
  Receipt Date: 20241119
  Transmission Date: 20250115
  Serious: No
  Sender: ROCHE
  Company Number: US-ROCHE-10000006809

PATIENT
  Age: 34 Year
  Sex: Female
  Weight: 81.65 kg

DRUGS (2)
  1. OCREVUS [Suspect]
     Active Substance: OCRELIZUMAB
     Indication: Relapsing-remitting multiple sclerosis
     Dosage: THEN SUBSEQUENTLY 600 MG EVERY 6 MONTHS.?DATE OF TREATMENT: 08/MAR/2024, 22/MAR/2024, 24/APR/2024.
     Route: 042
     Dates: start: 20240410, end: 20240424
  2. VITAMIN D3 [Concomitant]
     Active Substance: CHOLECALCIFEROL
     Dates: start: 20231129

REACTIONS (2)
  - Maternal exposure during pregnancy [Unknown]
  - Streptococcus test positive [Not Recovered/Not Resolved]

NARRATIVE: CASE EVENT DATE: 20241024
